FAERS Safety Report 14044969 (Version 2)
Quarter: 2017Q4

REPORT INFORMATION
  Report Type: Report from Study
  Country: US (occurrence: US)
  Receive Date: 20171005
  Receipt Date: 20171010
  Transmission Date: 20180321
  Serious: No
  Sender: FDA-Public Use
  Company Number: US-ASTRAZENECA-2017SE89666

PATIENT
  Age: 679 Month
  Sex: Female
  Weight: 43 kg

DRUGS (2)
  1. SYMBICORT [Suspect]
     Active Substance: BUDESONIDE\FORMOTEROL FUMARATE DIHYDRATE
     Indication: CHRONIC OBSTRUCTIVE PULMONARY DISEASE
     Dosage: 160 4.5 MCG, 2 PUFFS IN THE MORNING AND 2 PUFFS AT NIGHT
     Route: 055
     Dates: start: 201507, end: 201608
  2. LISINOPRIL. [Suspect]
     Active Substance: LISINOPRIL
     Indication: HYPERTENSION
     Route: 048
     Dates: start: 2013

REACTIONS (8)
  - Drug ineffective [Unknown]
  - Heart rate increased [Unknown]
  - Gait disturbance [Not Recovered/Not Resolved]
  - Insurance issue [Unknown]
  - Weight decreased [Not Recovered/Not Resolved]
  - Dyspnoea exertional [Recovering/Resolving]
  - Drug dose omission [Not Recovered/Not Resolved]
  - Feeling abnormal [Not Recovered/Not Resolved]

NARRATIVE: CASE EVENT DATE: 201608
